FAERS Safety Report 10452638 (Version 1)
Quarter: 2014Q3

REPORT INFORMATION
  Report Type: Other
  Country: US (occurrence: US)
  Receive Date: 20140915
  Receipt Date: 20140915
  Transmission Date: 20150326
  Serious: Yes (Other)
  Sender: FDA-Public Use
  Company Number: US-SHIRE-US201405788

PATIENT
  Age: 23 Year
  Sex: Female

DRUGS (2)
  1. CINRYZE [Suspect]
     Active Substance: HUMAN C1-ESTERASE INHIBITOR
     Indication: PROPHYLAXIS
     Dosage: OTHER (2000 UNITS AS NEEDED)
     Route: 042
     Dates: start: 20140110
  2. CINRYZE [Suspect]
     Active Substance: HUMAN C1-ESTERASE INHIBITOR
     Indication: HEREDITARY ANGIOEDEMA
     Dosage: 2000 UNITS, OTHER (EVERY OTHER DAY)
     Route: 042
     Dates: start: 20140110

REACTIONS (5)
  - Pharyngeal oedema [Recovered/Resolved]
  - Off label use [Not Recovered/Not Resolved]
  - Prescribed overdose [Not Recovered/Not Resolved]
  - Inappropriate schedule of drug administration [Not Recovered/Not Resolved]
  - Chest discomfort [Recovered/Resolved]

NARRATIVE: CASE EVENT DATE: 20140110
